FAERS Safety Report 22309134 (Version 1)
Quarter: 2023Q2

REPORT INFORMATION
  Report Type: Report from Study
  Country: US (occurrence: US)
  Receive Date: 20230511
  Receipt Date: 20230511
  Transmission Date: 20230722
  Serious: Yes (Hospitalization)
  Sender: FDA-Public Use
  Company Number: US-PFIZER INC-PV202300082948

PATIENT
  Age: 56 Year
  Sex: Female

DRUGS (4)
  1. IBRANCE [Suspect]
     Active Substance: PALBOCICLIB
     Indication: Breast cancer female
     Dosage: 125 MG
     Dates: start: 2022
  2. IBRANCE [Suspect]
     Active Substance: PALBOCICLIB
     Dosage: 100 MG, CYCLIC (ONCE DAILY FOR 21 DAYS ON, 7 DAYS OFF)
     Route: 048
     Dates: start: 202212
  3. ANASTROZOLE [Concomitant]
     Active Substance: ANASTROZOLE
     Dosage: UNK, DAILY
  4. TYLENOL [Concomitant]
     Active Substance: ACETAMINOPHEN
     Dosage: UNK

REACTIONS (3)
  - Constipation [Unknown]
  - Headache [Not Recovered/Not Resolved]
  - Platelet count decreased [Unknown]

NARRATIVE: CASE EVENT DATE: 20220101
